FAERS Safety Report 19440690 (Version 1)
Quarter: 2021Q2

REPORT INFORMATION
  Report Type: Other
  Country: PA (occurrence: PA)
  Receive Date: 20210621
  Receipt Date: 20210621
  Transmission Date: 20210717
  Serious: Yes (Other)
  Sender: FDA-Public Use
  Company Number: PA-ROCHE-2849487

PATIENT
  Age: 65 Year
  Sex: Female

DRUGS (2)
  1. BEVACIZUMAB. [Suspect]
     Active Substance: BEVACIZUMAB
     Indication: HEPATIC CANCER
     Route: 042
     Dates: start: 20210311, end: 20210506
  2. ATEZOLIZUMAB. [Suspect]
     Active Substance: ATEZOLIZUMAB
     Indication: HEPATIC CANCER
     Route: 041
     Dates: start: 20210311, end: 20210506

REACTIONS (3)
  - Haemoglobin decreased [Unknown]
  - Bleeding varicose vein [Recovering/Resolving]
  - Hypertension [Recovering/Resolving]
